FAERS Safety Report 5493480-4 (Version None)
Quarter: 2007Q4

REPORT INFORMATION
  Report Type: 
  Country: None (occurrence: None)
  Receive Date: 20071019
  Receipt Date: 20071011
  Transmission Date: 20080405
  Serious: Yes (Hospitalization)
  Sender: FDA-Public Use
  Company Number: 2007-03398

PATIENT
  Age: 75 Year
  Sex: Male
  Weight: 95 kg

DRUGS (1)
  1. VELCADE [Suspect]
     Indication: T-CELL LYMPHOMA

REACTIONS (1)
  - CELLULITIS [None]
